FAERS Safety Report 16022487 (Version 1)
Quarter: 2019Q2

REPORT INFORMATION
  Report Type: Spontaneous
  Country: US (occurrence: US)
  Receive Date: 20190301
  Receipt Date: 20190301
  Transmission Date: 20190711
  Serious: Yes (Life-Threatening, Other)
  Sender: FDA-Public Use
  Company Number: None

PATIENT
  Age: 14 Year
  Sex: Female
  Weight: 64.8 kg

DRUGS (3)
  1. CEFDINIR. [Suspect]
     Active Substance: CEFDINIR
     Indication: PRODUCT USED FOR UNKNOWN INDICATION
     Dosage: ?          QUANTITY:20 CAPSULE(S);?
     Route: 048
     Dates: start: 20190223, end: 20190227
  2. IBUPROFEN. [Concomitant]
     Active Substance: IBUPROFEN
  3. BENADRYL [Concomitant]
     Active Substance: DIPHENHYDRAMINE HYDROCHLORIDE

REACTIONS (10)
  - Feeding disorder [None]
  - Stomatitis [None]
  - Pharyngeal erythema [None]
  - Lip swelling [None]
  - Swollen tongue [None]
  - Tongue exfoliation [None]
  - Glossitis [None]
  - Oral mucosal blistering [None]
  - Dysphagia [None]
  - Lip blister [None]

NARRATIVE: CASE EVENT DATE: 20190227
